FAERS Safety Report 9221568 (Version 1)
Quarter: 2013Q2

REPORT INFORMATION
  Report Type: Spontaneous
  Country: US (occurrence: None)
  Receive Date: 20130408
  Receipt Date: 20130408
  Transmission Date: 20140414
  Serious: Yes (Hospitalization)
  Sender: FDA-Public Use
  Company Number: None

PATIENT
  Age: 14 Year
  Sex: Female
  Weight: 58.4 kg

DRUGS (3)
  1. CYTARABINE [Suspect]
     Dosage: TOTAL DOSE 2986 MG
     Dates: end: 20130326
  2. DAUNORUBICIN [Suspect]
     Dosage: TOTAL DOSE 243
     Dates: end: 20130331
  3. ETOPOSIDE (VP-16) [Suspect]
     Dosage: TOTAL DOSE 810 MG
     Dates: end: 20130331

REACTIONS (3)
  - Acute respiratory distress syndrome [None]
  - Sepsis [None]
  - Blood glucose increased [None]
